FAERS Safety Report 4808961-3 (Version None)
Quarter: 2005Q4

REPORT INFORMATION
  Report Type: 
  Country: None (occurrence: None)
  Receive Date: 20051025
  Receipt Date: 20051013
  Transmission Date: 20060501
  Serious: Yes (Life-Threatening, Hospitalization)
  Sender: FDA-Public Use
  Company Number: ES-ROCHE-420971

PATIENT
  Age: 88 Year
  Sex: Female

DRUGS (2)
  1. TICLID [Suspect]
     Route: 048
     Dates: start: 19990615, end: 20040215
  2. VIOXX [Suspect]
     Indication: OSTEOARTHRITIS
     Route: 048
     Dates: start: 20020615, end: 20040915

REACTIONS (3)
  - DRUG INEFFECTIVE [None]
  - ISCHAEMIC STROKE [None]
  - TRANSIENT ISCHAEMIC ATTACK [None]
